FAERS Safety Report 11131220 (Version 1)
Quarter: 2015Q2

REPORT INFORMATION
  Report Type: Spontaneous
  Country: FR (occurrence: FR)
  Receive Date: 20150522
  Receipt Date: 20150522
  Transmission Date: 20150821
  Serious: Yes (Life-Threatening)
  Sender: FDA-Public Use
  Company Number: FR-CELGENE-FRA-2015053486

PATIENT
  Age: 84 Year
  Sex: Male

DRUGS (2)
  1. AZACITIDINE INJECTABLE [Suspect]
     Active Substance: AZACITIDINE
     Indication: ACUTE MYELOID LEUKAEMIA
  2. AZACITIDINE INJECTABLE [Suspect]
     Active Substance: AZACITIDINE
     Indication: ACUTE MYELOID LEUKAEMIA
     Dosage: 75 MILLIGRAM/SQ. METER
     Route: 065

REACTIONS (6)
  - Diarrhoea [Unknown]
  - Pancytopenia [Unknown]
  - Mucosal inflammation [Unknown]
  - Sepsis [Unknown]
  - Aplasia [Recovered/Resolved]
  - Respiratory distress [Unknown]
